FAERS Safety Report 8910718 (Version 1)
Quarter: 2012Q4

REPORT INFORMATION
  Report Type: Spontaneous
  Country: US (occurrence: None)
  Receive Date: 20121113
  Receipt Date: 20121113
  Transmission Date: 20130627
  Serious: Yes (Disabling, Other)
  Sender: FDA-Public Use
  Company Number: 2012P1062236

PATIENT
  Age: 68 Year
  Sex: Female

DRUGS (7)
  1. LEVOFLOXACIN [Suspect]
     Indication: PROPHYLAXIS
     Dates: start: 2010
  2. LEVOFLOXACIN [Suspect]
     Indication: DOG BITE
     Dates: start: 2010
  3. ATENOLOL [Concomitant]
  4. AMLODPINE BESYLATE [Concomitant]
  5. RABEPRAZOLE SODIUM [Concomitant]
  6. DIPHENHYDRAMINE HYDROCHLORIDE [Concomitant]
  7. ASPIRIN (^LOW-DOSE^) [Concomitant]

REACTIONS (5)
  - Uveitis [None]
  - Chorioretinal disorder [None]
  - Macule [None]
  - Rash pustular [None]
  - Anxiety [None]
